FAERS Safety Report 4666700-3 (Version None)
Quarter: 2005Q2

REPORT INFORMATION
  Report Type: 
  Country: None (occurrence: None)
  Receive Date: 20050519
  Receipt Date: 20050202
  Transmission Date: 20051028
  Serious: Yes (Other)
  Sender: FDA-Public Use
  Company Number: PHBS2005JP01869

PATIENT
  Age: 68 Year
  Sex: Female

DRUGS (4)
  1. AREDIA [Suspect]
     Indication: MULTIPLE MYELOMA
     Dosage: 90 MG, QMO
     Route: 042
     Dates: start: 20000101, end: 20020101
  2. MELPHALAN [Concomitant]
     Indication: MULTIPLE MYELOMA
     Route: 065
     Dates: start: 20000101
  3. PREDONINE [Concomitant]
     Dosage: 60 MG/D
     Route: 065
     Dates: start: 20000101
  4. BISPHONAL [Concomitant]
     Dates: start: 20020101

REACTIONS (11)
  - ABSCESS JAW [None]
  - ASEPTIC NECROSIS BONE [None]
  - BONE DISORDER [None]
  - DENTURE WEARER [None]
  - FISTULA [None]
  - GINGIVAL SWELLING [None]
  - INSOMNIA [None]
  - ORAL DISCOMFORT [None]
  - OSTEOMYELITIS [None]
  - STOMATITIS [None]
  - WOUND DEHISCENCE [None]
